FAERS Safety Report 12195943 (Version 1)
Quarter: 2016Q1

REPORT INFORMATION
  Report Type: Spontaneous
  Country: US (occurrence: US)
  Receive Date: 20160321
  Receipt Date: 20160321
  Transmission Date: 20160526
  Serious: No
  Sender: FDA-Public Use
  Company Number: US-MEDA-2016020064

PATIENT
  Age: 64 Year
  Sex: Female
  Weight: 54 kg

DRUGS (9)
  1. PREDNISONE. [Concomitant]
     Active Substance: PREDNISONE
     Dates: end: 20160218
  2. ALBUTEROL. [Concomitant]
     Active Substance: ALBUTEROL
  3. AUGMENTIN [Concomitant]
     Active Substance: AMOXICILLIN\CLAVULANATE POTASSIUM
     Indication: WHEEZING
     Dates: start: 20160218
  4. AUGMENTIN [Concomitant]
     Active Substance: AMOXICILLIN\CLAVULANATE POTASSIUM
     Indication: BRONCHITIS
     Dates: start: 20160218
  5. CIPRO [Concomitant]
     Active Substance: CIPROFLOXACIN HYDROCHLORIDE
  6. LEVOTHYROXINE. [Concomitant]
     Active Substance: LEVOTHYROXINE
     Indication: THYROID DISORDER
     Dates: start: 2001
  7. AEROSPAN [Suspect]
     Active Substance: FLUNISOLIDE
     Indication: ASTHMA
     Dates: start: 20160214, end: 20160218
  8. NASONEX D [Concomitant]
     Indication: BRONCHITIS
  9. NASONEX D [Concomitant]
     Indication: WHEEZING

REACTIONS (9)
  - Pulmonary pain [Not Recovered/Not Resolved]
  - Back pain [Not Recovered/Not Resolved]
  - Fatigue [Recovered/Resolved]
  - Chills [Recovered/Resolved]
  - Cough [Recovered/Resolved]
  - Sputum discoloured [Recovered/Resolved]
  - Chest discomfort [Recovered/Resolved]
  - Incorrect dose administered [Recovered/Resolved]
  - Expired product administered [Recovered/Resolved]

NARRATIVE: CASE EVENT DATE: 201602
